FAERS Safety Report 10412869 (Version 3)
Quarter: 2014Q4

REPORT INFORMATION
  Report Type: Spontaneous
  Country: CN (occurrence: CN)
  Receive Date: 20140827
  Receipt Date: 20141108
  Transmission Date: 20150528
  Serious: Yes (Hospitalization)
  Sender: FDA-Public Use
  Company Number: CN-ASTRAZENECA-2014SE36252

PATIENT
  Sex: Male

DRUGS (9)
  1. BETALOC ZOK [Suspect]
     Active Substance: METOPROLOL SUCCINATE
     Indication: HYPERTENSION
     Dosage: 71.25 MG (1.5 X 47.5 MG) EVERYDAY
     Route: 048
  2. SARTAN [Concomitant]
  3. BETALOC [Suspect]
     Active Substance: METOPROLOL TARTRATE
     Indication: EXTRASYSTOLES
     Route: 048
     Dates: start: 2006
  4. BETALOC ZOK [Suspect]
     Active Substance: METOPROLOL SUCCINATE
     Indication: ATRIAL FIBRILLATION
     Dosage: 71.25 MG (1.5 X 47.5 MG) EVERYDAY
     Route: 048
  5. LOTENSIN [Concomitant]
     Active Substance: BENAZEPRIL HYDROCHLORIDE
     Route: 048
     Dates: start: 2006
  6. BETALOC ZOK [Suspect]
     Active Substance: METOPROLOL SUCCINATE
     Indication: EXTRASYSTOLES
     Dosage: 71.25 MG (1.5 X 47.5 MG) EVERYDAY
     Route: 048
  7. PLENDIL [Concomitant]
     Active Substance: FELODIPINE
  8. NIFEDIPINE. [Concomitant]
     Active Substance: NIFEDIPINE
  9. BETALOC [Suspect]
     Active Substance: METOPROLOL TARTRATE
     Indication: HYPERTENSION
     Route: 048
     Dates: start: 2006

REACTIONS (3)
  - Drug ineffective [Unknown]
  - Transient ischaemic attack [Recovered/Resolved]
  - Blood pressure fluctuation [Not Recovered/Not Resolved]
